FAERS Safety Report 11555515 (Version 5)
Quarter: 2015Q4

REPORT INFORMATION
  Report Type: Report from Study
  Country: DE (occurrence: DE)
  Receive Date: 20150925
  Receipt Date: 20151120
  Transmission Date: 20160304
  Serious: Yes (Death, Life-Threatening)
  Sender: FDA-Public Use
  Company Number: DE-PFIZER INC-2015276487

PATIENT
  Age: 74 Year
  Sex: Male
  Weight: 74 kg

DRUGS (17)
  1. OXYGESIC [Concomitant]
     Active Substance: OXYCODONE
     Dosage: 20 MG, 2X/DAY
     Route: 048
     Dates: start: 20150719
  2. SEVREDOL [Suspect]
     Active Substance: MORPHINE
     Indication: NEUROENDOCRINE CARCINOMA OF THE SKIN
     Dosage: UNK
  3. OXYCODON [Suspect]
     Active Substance: OXYCODONE
     Indication: NEUROENDOCRINE CARCINOMA OF THE SKIN
     Dosage: UNK
  4. ASPIRIN. [Concomitant]
     Active Substance: ASPIRIN
     Indication: THROMBOSIS PROPHYLAXIS
     Dosage: 100 MG, 1X/DAY
     Route: 048
     Dates: start: 2011
  5. BISOPROLOL [Concomitant]
     Active Substance: BISOPROLOL
     Indication: CARDIAC FAILURE
     Dosage: 5 MG, 1X/DAY
     Route: 048
     Dates: start: 2011
  6. OXYGESIC [Concomitant]
     Active Substance: OXYCODONE
     Indication: ABDOMINAL PAIN
     Dosage: 30 MG, 2X/DAY
     Route: 048
     Dates: start: 2015
  7. PANTOPRAZOLE SODIUM. [Concomitant]
     Active Substance: PANTOPRAZOLE SODIUM
     Indication: PROPHYLAXIS
     Dosage: 40 MG, 1X/DAY
     Route: 048
     Dates: start: 2013
  8. LAXOBERAL [Concomitant]
     Active Substance: SODIUM PICOSULFATE
     Indication: CONSTIPATION
     Dosage: 20 GTT, 3X/DAY
     Route: 048
     Dates: start: 20150709
  9. DOMPERIDON /00498201/ [Concomitant]
     Indication: NAUSEA
     Dosage: 10 MG, 3X/DAY
     Route: 048
     Dates: start: 20150709
  10. LEVETIRACETAM. [Concomitant]
     Active Substance: LEVETIRACETAM
     Indication: DELIRIUM
     Dosage: 500 MG, 2X/DAY
     Route: 048
     Dates: start: 20150710
  11. AMLODIPINE [Concomitant]
     Active Substance: AMLODIPINE BESYLATE
     Indication: CARDIAC FAILURE
     Dosage: 5 MG, 1X/DAY
     Route: 048
     Dates: start: 2011
  12. TARGIN [Concomitant]
     Active Substance: NALOXONE HYDROCHLORIDE\OXYCODONE HYDROCHLORIDE
     Indication: TUMOUR PAIN
     Dosage: 10 MG, 2X/DAY
     Route: 048
     Dates: start: 20150709
  13. DIGITOXIN [Concomitant]
     Active Substance: DIGITOXIN
     Indication: TACHYARRHYTHMIA
     Dosage: 0.07 MG, 1X/DAY
     Route: 048
     Dates: start: 20150727
  14. MSB0010718C [Suspect]
     Active Substance: AVELUMAB
     Indication: NEUROENDOCRINE CARCINOMA OF THE SKIN
     Dosage: 739 MG, ONCE EVERY 2 WEEKS
     Route: 042
     Dates: start: 20150709, end: 20150807
  15. MOVICOL [Concomitant]
     Active Substance: POLYETHYLENE GLYCOL 3350\POTASSIUM CHLORIDE\SODIUM BICARBONATE\SODIUM CHLORIDE
     Indication: CONSTIPATION
     Dosage: 1 BAG, 3X/DAY
     Route: 048
     Dates: start: 20150709
  16. NOVALGIN [Concomitant]
     Active Substance: METAMIZOLE SODIUM
     Indication: TUMOUR PAIN
     Dosage: 1000 MG, 1X/DAY
     Route: 048
     Dates: start: 20150709
  17. ORALAV [Concomitant]
     Indication: FAECALOMA
     Dosage: UNK
     Route: 048
     Dates: start: 20150804, end: 20150806

REACTIONS (1)
  - Ileus [Fatal]

NARRATIVE: CASE EVENT DATE: 20150811
